FAERS Safety Report 13583859 (Version 1)
Quarter: 2017Q2

REPORT INFORMATION
  Report Type: Spontaneous
  Country: US (occurrence: US)
  Receive Date: 20170526
  Receipt Date: 20170526
  Transmission Date: 20170830
  Serious: Yes (Other)
  Sender: FDA-Public Use
  Company Number: US-TEVA-771907ACC

PATIENT
  Sex: Female

DRUGS (2)
  1. CISPLATIN. [Concomitant]
     Active Substance: CISPLATIN
  2. PACLITAXEL. [Suspect]
     Active Substance: PACLITAXEL
     Route: 065

REACTIONS (2)
  - Neoplasm progression [Unknown]
  - Drug ineffective [Unknown]
